FAERS Safety Report 15606121 (Version 1)
Quarter: 2018Q4

REPORT INFORMATION
  Report Type: Spontaneous
  Country: AT (occurrence: AT)
  Receive Date: 20181112
  Receipt Date: 20181112
  Transmission Date: 20190205
  Serious: Yes (Other)
  Sender: FDA-Public Use
  Company Number: AT-B.I. PHARMACEUTICALS,INC./RIDGEFIELD-2018-BI-054307

PATIENT
  Age: 78 Year
  Sex: Male

DRUGS (1)
  1. PRADAXA [Suspect]
     Active Substance: DABIGATRAN ETEXILATE MESYLATE
     Indication: ATRIAL FIBRILLATION
     Dosage: THERAPY LAST INTAKE: 2.5 HOURS AGO
     Route: 065

REACTIONS (5)
  - Facial paralysis [Unknown]
  - Speech disorder [Unknown]
  - NIH stroke scale abnormal [Unknown]
  - Hypoaesthesia [Unknown]
  - Hemiparesis [Unknown]
